FAERS Safety Report 14244026 (Version 1)
Quarter: 2017Q4

REPORT INFORMATION
  Report Type: Spontaneous
  Country: US (occurrence: US)
  Receive Date: 20171201
  Receipt Date: 20171201
  Transmission Date: 20180321
  Serious: No
  Sender: FDA-Public Use
  Company Number: US-ASTRAZENECA-2017SF17166

PATIENT
  Sex: Male
  Weight: 67.1 kg

DRUGS (1)
  1. BRILINTA [Suspect]
     Active Substance: TICAGRELOR
     Indication: STENT PLACEMENT
     Route: 048
     Dates: start: 201611

REACTIONS (5)
  - Visual impairment [Unknown]
  - Confusional state [Unknown]
  - Rash [Unknown]
  - Feeling abnormal [Unknown]
  - Dyspnoea [Unknown]
